FAERS Safety Report 17701688 (Version 2)
Quarter: 2022Q1

REPORT INFORMATION
  Report Type: Spontaneous
  Country: US (occurrence: US)
  Receive Date: 20200424
  Receipt Date: 20220211
  Transmission Date: 20220423
  Serious: No
  Sender: FDA-Public Use
  Company Number: US-TEVA-2020-US-1224963

PATIENT
  Age: 45 Year
  Sex: Female

DRUGS (7)
  1. ACTIQ [Suspect]
     Active Substance: FENTANYL CITRATE
     Indication: Breakthrough pain
     Dosage: 1200 MICROGRAM DAILY; HAS TAKEN BOTH THE 200MCG AND 800MCG DOSE IN THE PAST
     Route: 065
     Dates: start: 2004
  2. ACTIQ [Suspect]
     Active Substance: FENTANYL CITRATE
     Indication: Spinal operation
  3. ACTIQ [Suspect]
     Active Substance: FENTANYL CITRATE
     Indication: Ankle operation
  4. ACTIQ [Suspect]
     Active Substance: FENTANYL CITRATE
     Indication: Brain neoplasm
  5. ACTIQ [Suspect]
     Active Substance: FENTANYL CITRATE
     Indication: General physical health deterioration
  6. METHADONE [Concomitant]
     Active Substance: METHADONE HYDROCHLORIDE
  7. CLONIDINE [Concomitant]
     Active Substance: CLONIDINE

REACTIONS (4)
  - Pain [Unknown]
  - Therapy interrupted [Unknown]
  - Product availability issue [Unknown]
  - Off label use [Unknown]

NARRATIVE: CASE EVENT DATE: 20040101
